FAERS Safety Report 10469050 (Version 1)
Quarter: 2014Q3

REPORT INFORMATION
  Report Type: Spontaneous
  Country: US (occurrence: US)
  Receive Date: 20140923
  Receipt Date: 20140923
  Transmission Date: 20150326
  Serious: Yes (Other)
  Sender: FDA-Public Use
  Company Number: US-BRISTOL-MYERS SQUIBB COMPANY-21411996

PATIENT
  Age: 83 Year
  Sex: Male

DRUGS (1)
  1. YERVOY [Suspect]
     Active Substance: IPILIMUMAB

REACTIONS (4)
  - Malignant neoplasm progression [Unknown]
  - Necrosis [Unknown]
  - Amputation [Unknown]
  - Diarrhoea [Unknown]
